FAERS Safety Report 9235828 (Version 4)
Quarter: 2013Q2

REPORT INFORMATION
  Report Type: Spontaneous
  Country: AU (occurrence: AU)
  Receive Date: 20130417
  Receipt Date: 20130521
  Transmission Date: 20140414
  Serious: Yes (Life-Threatening, Hospitalization, Other)
  Sender: FDA-Public Use
  Company Number: PHHY2013AU036520

PATIENT
  Age: 85 Year
  Sex: Female
  Weight: 59 kg

DRUGS (4)
  1. ACLASTA [Suspect]
     Indication: OSTEOPOROSIS
     Dosage: 5 MG, UNK
     Route: 042
     Dates: start: 20091125
  2. ACLASTA [Suspect]
     Dosage: 5 MG, UNK
     Route: 042
     Dates: start: 20130222, end: 20130312
  3. ANGIOTENSIN CONVERTING ENZYME BLOCKERS [Concomitant]
  4. CALCIUM [Concomitant]

REACTIONS (15)
  - Renal tubular necrosis [Recovering/Resolving]
  - Tubulointerstitial nephritis [Recovering/Resolving]
  - Renal failure acute [Recovering/Resolving]
  - Anuria [Unknown]
  - Malaise [Unknown]
  - Nausea [Unknown]
  - Oedema [Unknown]
  - Vomiting [Unknown]
  - Urine output decreased [Unknown]
  - Renal disorder [Recovering/Resolving]
  - Acute myocardial infarction [Unknown]
  - Gastrooesophageal reflux disease [Unknown]
  - Dehydration [Unknown]
  - Arthralgia [Unknown]
  - Pyrexia [Unknown]
